FAERS Safety Report 4385853-8 (Version None)
Quarter: 2004Q2

REPORT INFORMATION
  Report Type: 
  Country: None (occurrence: None)
  Receive Date: 20040621
  Receipt Date: 20040608
  Transmission Date: 20050107
  Serious: No
  Sender: FDA-Public Use
  Company Number: 04P-167-0263543-00

PATIENT
  Age: 37 Year
  Sex: Female

DRUGS (9)
  1. RITONAVIR SOFT GELATIN CAPSULES (NOVARI) (RITONAVIR) [Suspect]
     Indication: HIV INFECTION
     Dosage: PER ORAL
     Route: 048
     Dates: start: 20031010
  2. TIPRANAVIR [Concomitant]
  3. TENOFOVIR [Concomitant]
  4. LAMIVUDINE [Concomitant]
  5. T20 [Concomitant]
  6. ABACAVIR [Concomitant]
  7. DAPSONE [Concomitant]
  8. FOSAMPRENAVIR [Concomitant]
  9. FERROUS SULFATE TAB [Concomitant]

REACTIONS (2)
  - THERAPY NON-RESPONDER [None]
  - VIRAL LOAD INCREASED [None]
